FAERS Safety Report 15295598 (Version 15)
Quarter: 2023Q2

REPORT INFORMATION
  Report Type: Report from Study
  Country: CA (occurrence: CA)
  Receive Date: 20180820
  Receipt Date: 20230623
  Transmission Date: 20230722
  Serious: Yes (Hospitalization, Other)
  Sender: FDA-Public Use
  Company Number: PHHY2018CA007082

PATIENT
  Age: 62 Year
  Sex: Female

DRUGS (14)
  1. COSENTYX [Suspect]
     Active Substance: SECUKINUMAB
     Indication: Psoriatic arthropathy
     Dosage: 300 MG, QW
     Route: 058
     Dates: start: 20180503
  2. COSENTYX [Suspect]
     Active Substance: SECUKINUMAB
     Dosage: 300 MG, QMO
     Route: 058
  3. COSENTYX [Suspect]
     Active Substance: SECUKINUMAB
     Dosage: 300 MG, QMO
     Route: 058
     Dates: start: 201808, end: 20181001
  4. COSENTYX [Suspect]
     Active Substance: SECUKINUMAB
     Dosage: 300 MG, QMO
     Route: 058
  5. COSENTYX [Suspect]
     Active Substance: SECUKINUMAB
     Dosage: 300 MG, QMO
     Route: 058
     Dates: start: 20210610
  6. COSENTYX [Suspect]
     Active Substance: SECUKINUMAB
     Dosage: 300 MG, QMO
     Route: 058
     Dates: start: 202107
  7. METHOTREXATE [Concomitant]
     Active Substance: METHOTREXATE
     Indication: Product used for unknown indication
     Dosage: UNK
     Route: 048
     Dates: start: 2014
  8. METHOTREXATE [Concomitant]
     Active Substance: METHOTREXATE
     Dosage: UNK
     Route: 065
     Dates: start: 20180811
  9. DICLOFENAC SODIUM [Concomitant]
     Active Substance: DICLOFENAC SODIUM
     Indication: Product used for unknown indication
     Dosage: UNK
     Route: 048
     Dates: start: 2018, end: 202008
  10. HUMIRA [Concomitant]
     Active Substance: ADALIMUMAB
     Indication: Femur fracture
     Dosage: UNK, BIW
     Route: 065
     Dates: start: 2013
  11. METADOL [Concomitant]
     Indication: Spinal cord herniation
     Dosage: UNK
     Route: 065
  12. NAPROXEN [Concomitant]
     Active Substance: NAPROXEN
     Indication: Product used for unknown indication
     Dosage: UNK, BID
     Route: 065
     Dates: start: 202008
  13. HYDROXYCHLOROQUINE [Concomitant]
     Active Substance: HYDROXYCHLOROQUINE
     Indication: Product used for unknown indication
     Dosage: UNK
     Route: 065
  14. DILAUDID [Concomitant]
     Active Substance: HYDROMORPHONE HYDROCHLORIDE
     Indication: Surgery
     Dosage: UNK
     Route: 065

REACTIONS (25)
  - Joint dislocation [Unknown]
  - Staphylococcal infection [Unknown]
  - Postoperative wound infection [Unknown]
  - Haemoglobin decreased [Unknown]
  - Cerebrovascular accident [Unknown]
  - Gastric ulcer [Unknown]
  - Intervertebral disc protrusion [Unknown]
  - Kidney infection [Unknown]
  - Non-alcoholic steatohepatitis [Unknown]
  - Psoriatic arthropathy [Unknown]
  - Dysstasia [Unknown]
  - Movement disorder [Unknown]
  - Arthralgia [Unknown]
  - Grip strength decreased [Unknown]
  - Pain [Unknown]
  - Application site vesicles [Unknown]
  - Post procedural complication [Unknown]
  - Hypersensitivity [Unknown]
  - Cyst [Unknown]
  - Swelling [Unknown]
  - Ulnar tunnel syndrome [Unknown]
  - Pain in extremity [Unknown]
  - Infection [Unknown]
  - Incorrect dose administered [Unknown]
  - Product dose omission issue [Unknown]

NARRATIVE: CASE EVENT DATE: 20180503
